FAERS Safety Report 4812861-2 (Version None)
Quarter: 2005Q4

REPORT INFORMATION
  Report Type: 
  Country: None (occurrence: None)
  Receive Date: 20051028
  Receipt Date: 20041129
  Transmission Date: 20060501
  Serious: No
  Sender: FDA-Public Use
  Company Number: US-GLAXOSMITHKLINE-A0535396A

PATIENT
  Age: 84 Year

DRUGS (2)
  1. ADVAIR DISKUS 100/50 [Suspect]
     Indication: DRUG USE FOR UNKNOWN INDICATION
     Dosage: 100MCG TWICE PER DAY
     Route: 055
     Dates: start: 20041116, end: 20041129
  2. NO CONCURRENT MEDICATION [Concomitant]

REACTIONS (2)
  - FLAT AFFECT [None]
  - PHARMACEUTICAL PRODUCT COMPLAINT [None]
